FAERS Safety Report 5373483-0 (Version None)
Quarter: 2007Q2

REPORT INFORMATION
  Report Type: 
  Country: None (occurrence: None)
  Receive Date: 20070628
  Receipt Date: 20070618
  Transmission Date: 20071010
  Serious: Yes (Life-Threatening, Hospitalization)
  Sender: FDA-Public Use
  Company Number: GB-AMGEN-US231251

PATIENT
  Age: 59 Year
  Sex: Male
  Weight: 115 kg

DRUGS (9)
  1. ENBREL [Suspect]
     Indication: RHEUMATOID ARTHRITIS
     Route: 058
     Dates: start: 20070126, end: 20070601
  2. PERINDOPRIL ERBUMINE [Concomitant]
     Dosage: 4 MG FREQUENCY UNKNOWN
     Route: 048
  3. EZETIMIBE [Concomitant]
     Dosage: 10 MG FREQUENCY UNKNOWN
     Route: 048
  4. QUININE SULFATE [Concomitant]
     Route: 048
  5. INSULIN [Concomitant]
     Route: 058
  6. LANSOPRAZOLE [Concomitant]
     Route: 048
  7. METHOTREXATE [Concomitant]
     Dosage: 10 MG FREQUENCY UNKNOWN
     Route: 048
  8. DOXAZOSIN MESYLATE [Concomitant]
     Dosage: 4 MG FREQUENCY UNKNOWN
     Route: 048
  9. FOLIC ACID [Concomitant]
     Dosage: 10 MG FREQUENCY UNKNOWN
     Route: 048

REACTIONS (5)
  - CONDITION AGGRAVATED [None]
  - DIABETES MELLITUS [None]
  - LOWER RESPIRATORY TRACT INFECTION [None]
  - PULMONARY FUNCTION TEST DECREASED [None]
  - RHEUMATOID ARTHRITIS [None]
